FAERS Safety Report 9745329 (Version 1)
Quarter: 2013Q4

REPORT INFORMATION
  Report Type: Spontaneous
  Country: JP (occurrence: JP)
  Receive Date: 20131211
  Receipt Date: 20131211
  Transmission Date: 20140711
  Serious: Yes (Hospitalization, Other)
  Sender: FDA-Public Use
  Company Number: JP-ROCHE-1313939

PATIENT
  Age: 68 Year
  Sex: Female

DRUGS (3)
  1. AVASTIN [Suspect]
     Indication: BREAST CANCER
     Route: 041
     Dates: start: 20120220, end: 20120422
  2. AVASTIN [Suspect]
     Route: 041
     Dates: start: 201304
  3. PACLITAXEL [Concomitant]
     Indication: BREAST CANCER
     Dosage: DOSAGE IS UNCERTAIN.
     Route: 041
     Dates: start: 201304

REACTIONS (9)
  - Fall [Unknown]
  - Contusion [Unknown]
  - Cellulitis [Recovered/Resolved]
  - Deep vein thrombosis [Unknown]
  - Beta haemolytic streptococcal infection [Recovered/Resolved]
  - Shock [Recovering/Resolving]
  - Oedema [Recovering/Resolving]
  - Pleural effusion [Recovering/Resolving]
  - Ascites [Recovering/Resolving]
